FAERS Safety Report 19673286 (Version 1)
Quarter: 2021Q3

REPORT INFORMATION
  Report Type: Spontaneous
  Country: AU (occurrence: AU)
  Receive Date: 20210809
  Receipt Date: 20210809
  Transmission Date: 20211014
  Serious: Yes (Death, Life-Threatening, Hospitalization)
  Sender: FDA-Public Use
  Company Number: AU-MACLEODS PHARMACEUTICALS US LTD-MAC2021032121

PATIENT

DRUGS (3)
  1. ETHAMBUTOL [Concomitant]
     Active Substance: ETHAMBUTOL HYDROCHLORIDE
     Indication: MYCOBACTERIUM AVIUM COMPLEX INFECTION
     Dosage: UNK
     Route: 065
  2. AZITHROMYCIN ANHYDROUS. [Concomitant]
     Active Substance: AZITHROMYCIN ANHYDROUS
     Indication: MYCOBACTERIUM AVIUM COMPLEX INFECTION
     Dosage: UNK
     Route: 065
  3. TENOFOVIR [Suspect]
     Active Substance: TENOFOVIR
     Indication: HEPATITIS B
     Dosage: UNK, TENOFOVIR DISOPROXIL
     Route: 065

REACTIONS (10)
  - Haemophagocytic lymphohistiocytosis [Unknown]
  - Pleural effusion [Unknown]
  - Natural killer-cell lymphoblastic lymphoma [Fatal]
  - Pneumonia [Unknown]
  - Hypophosphataemia [Unknown]
  - Hypophosphataemic osteomalacia [Fatal]
  - Respiratory distress [Unknown]
  - Hyperparathyroidism [Unknown]
  - Hypoxia [Unknown]
  - Sepsis [Unknown]
